FAERS Safety Report 22058606 (Version 2)
Quarter: 2023Q1

REPORT INFORMATION
  Report Type: Spontaneous
  Country: US (occurrence: US)
  Receive Date: 20230303
  Receipt Date: 20230317
  Transmission Date: 20230418
  Serious: Yes (Hospitalization, Other)
  Sender: FDA-Public Use
  Company Number: US-Hikma Pharmaceuticals USA Inc.-US-H14001-23-00573

PATIENT
  Age: 18 Year
  Sex: Female
  Weight: 154.1 kg

DRUGS (9)
  1. METHOTREXATE [Suspect]
     Active Substance: METHOTREXATE
     Indication: Acute lymphocytic leukaemia
     Route: 037
     Dates: start: 20230119
  2. DEXAMETHASONE [Suspect]
     Active Substance: DEXAMETHASONE
     Indication: Acute lymphocytic leukaemia
     Dosage: 12 MILLIGRAM QAM, 15 MILLIGRAM QPM
     Route: 048
     Dates: start: 20230119
  3. DOXORUBICIN [Suspect]
     Active Substance: DOXORUBICIN
     Indication: Acute lymphocytic leukaemia
     Dosage: UNKNOWN
     Route: 042
  4. RUXOLITINIB [Suspect]
     Active Substance: RUXOLITINIB
     Indication: Acute lymphocytic leukaemia
     Route: 048
     Dates: start: 20220908, end: 20221211
  5. RUXOLITINIB [Suspect]
     Active Substance: RUXOLITINIB
     Route: 048
     Dates: start: 20221214
  6. RUXOLITINIB [Suspect]
     Active Substance: RUXOLITINIB
     Route: 048
     Dates: start: 20230119
  7. PEGASPARGASE [Suspect]
     Active Substance: PEGASPARGASE
     Indication: Acute lymphocytic leukaemia
     Route: 042
     Dates: start: 20230123
  8. VINCRISTINE [Suspect]
     Active Substance: VINCRISTINE
     Indication: Acute lymphocytic leukaemia
     Route: 042
     Dates: start: 20230119
  9. LEVOFLOXACIN [Concomitant]
     Active Substance: LEVOFLOXACIN
     Indication: Product used for unknown indication
     Dosage: UNKNOWN
     Route: 065
     Dates: start: 20230201

REACTIONS (23)
  - Lung opacity [Unknown]
  - Blood creatinine increased [Unknown]
  - Atelectasis [Unknown]
  - Subclavian vein stenosis [Unknown]
  - Pain in extremity [Recovered/Resolved]
  - Tachypnoea [Unknown]
  - Palpitations [Unknown]
  - Tachycardia [Unknown]
  - Dyspnoea [Recovered/Resolved]
  - Back pain [Recovered/Resolved]
  - Dizziness [Unknown]
  - Hypotension [Unknown]
  - Arthralgia [Recovered/Resolved]
  - Neutropenia [Unknown]
  - Platelet count decreased [Unknown]
  - White blood cell count decreased [Unknown]
  - Neutrophil percentage decreased [Unknown]
  - Sepsis [Recovered/Resolved]
  - Pneumonia [Unknown]
  - Upper respiratory tract infection [Recovered/Resolved]
  - Respiratory syncytial virus infection [Unknown]
  - Vulval abscess [Recovering/Resolving]
  - Depression [Unknown]

NARRATIVE: CASE EVENT DATE: 20221201
